FAERS Safety Report 7015012-1 (Version None)
Quarter: 2010Q3

REPORT INFORMATION
  Report Type: 
  Country: None (occurrence: None)
  Receive Date: 20100927
  Receipt Date: 20090826
  Transmission Date: 20110219
  Serious: No
  Sender: FDA-Public Use
  Company Number: US-ASTRAZENECA-2007UW16240

PATIENT
  Age: 81 Year
  Sex: Female
  Weight: 95.3 kg

DRUGS (2)
  1. ARIMIDEX [Suspect]
     Indication: BREAST CANCER STAGE II
     Route: 048
     Dates: start: 20070101
  2. NEXIUM [Concomitant]

REACTIONS (5)
  - ALOPECIA [None]
  - ANXIETY [None]
  - ARTHRITIS [None]
  - HYPERHIDROSIS [None]
  - SKIN DISCOLOURATION [None]
